FAERS Safety Report 7057490-8 (Version None)
Quarter: 2010Q4

REPORT INFORMATION
  Report Type: 
  Country: None (occurrence: None)
  Receive Date: 20101022
  Receipt Date: 20101013
  Transmission Date: 20110411
  Serious: Yes (Hospitalization)
  Sender: FDA-Public Use
  Company Number: JP-PFIZER INC-2010129694

PATIENT
  Age: 46 Year
  Sex: Male

DRUGS (4)
  1. METHYLPREDNISOLONE SODIUM SUCCINATE [Suspect]
     Indication: IMMUNOSUPPRESSION
     Route: 042
  2. AMPICILLIN SODIUM/SULBACTAM SODIUM [Concomitant]
  3. CEFOTAXIME [Concomitant]
  4. FK506 [Concomitant]
     Dosage: UNK

REACTIONS (1)
  - SEPSIS [None]
